FAERS Safety Report 10675849 (Version 2)
Quarter: 2015Q1

REPORT INFORMATION
  Report Type: Spontaneous
  Country: IT (occurrence: IT)
  Receive Date: 20141225
  Receipt Date: 20150211
  Transmission Date: 20150720
  Serious: Yes (Hospitalization)
  Sender: FDA-Public Use
  Company Number: IT-ROCHE-1513618

PATIENT
  Age: 52 Year
  Sex: Female

DRUGS (3)
  1. CYMEVENE [Suspect]
     Active Substance: GANCICLOVIR
     Indication: CYTOMEGALOVIRUS INFECTION
     Dosage: FORM STRENGTH: 500MG/10ML
     Route: 042
  2. OMEGA-3 (DOCOSAHEXANOIC ACID, EICOSAPENTAENOIC ACID) [Suspect]
     Active Substance: DOCONEXENT\ICOSAPENT
     Indication: HYPERCHOLESTEROLAEMIA
     Route: 048
  3. PROVISACOR [Suspect]
     Active Substance: ROSUVASTATIN
     Indication: HYPERCHOLESTEROLAEMIA
     Route: 048

REACTIONS (1)
  - Toxic skin eruption [Recovered/Resolved]

NARRATIVE: CASE EVENT DATE: 20140313
